FAERS Safety Report 15734448 (Version 2)
Quarter: 2020Q1

REPORT INFORMATION
  Report Type: Spontaneous
  Country: US (occurrence: US)
  Receive Date: 20181218
  Receipt Date: 20200208
  Transmission Date: 20200409
  Serious: No
  Sender: FDA-Public Use
  Company Number: US-009507513-1812USA006488

PATIENT
  Sex: Female

DRUGS (4)
  1. MOMETASONE FUROATE. [Suspect]
     Active Substance: MOMETASONE FUROATE
     Indication: HYPERSENSITIVITY
     Dosage: UNK
     Route: 045
  2. NASONEX [Suspect]
     Active Substance: MOMETASONE FUROATE
     Dosage: UNK
     Route: 045
  3. ALLERGENIC EXTRACT [Concomitant]
     Active Substance: ALLERGENIC EXTRACTS
     Dosage: UNK, QW
  4. FLONASE [Suspect]
     Active Substance: FLUTICASONE PROPIONATE
     Dosage: UNK
     Route: 045

REACTIONS (2)
  - Dysgeusia [Unknown]
  - Rhinorrhoea [Not Recovered/Not Resolved]
